FAERS Safety Report 15127731 (Version 2)
Quarter: 2018Q3

REPORT INFORMATION
  Report Type: Report from Study
  Country: SE (occurrence: SE)
  Receive Date: 20180710
  Receipt Date: 20180723
  Transmission Date: 20181010
  Serious: Yes (Hospitalization, Other)
  Sender: FDA-Public Use
  Company Number: PHHY2018SE039050

PATIENT
  Age: 70 Year
  Sex: Female
  Weight: 49 kg

DRUGS (10)
  1. ISOSORBIDE MONONITRATE. [Concomitant]
     Active Substance: ISOSORBIDE MONONITRATE
     Indication: ANGINA PECTORIS
     Dosage: 30 MG, QD
     Route: 048
     Dates: start: 20171228
  2. ACETYLSALICYLIC ACID [Concomitant]
     Active Substance: ASPIRIN
     Indication: THROMBOSIS PROPHYLAXIS
     Dosage: 75 MG, QD
     Route: 048
     Dates: start: 20171229
  3. TRAMADOL. [Concomitant]
     Active Substance: TRAMADOL
     Indication: BACK PAIN
     Dosage: 100 MG, QD (50 MG 2 IN ONE DAY)
     Route: 048
     Dates: start: 20180416, end: 20180604
  4. BISOPROLOL [Concomitant]
     Active Substance: BISOPROLOL
     Indication: HYPERTENSION
     Dosage: 5 MG, QD (2.5 MG, 2 IN 1 D)
     Route: 048
     Dates: start: 20171228
  5. ZOLPIDEM [Concomitant]
     Active Substance: ZOLPIDEM\ZOLPIDEM TARTRATE
     Indication: INSOMNIA
     Dosage: 10 MG, PRN
     Route: 048
     Dates: start: 20180307
  6. METOKLOPRAMID [Concomitant]
     Indication: NAUSEA
     Dosage: 10 MG, PRN
     Route: 048
     Dates: start: 20180605
  7. TRAMADOL. [Concomitant]
     Active Substance: TRAMADOL
     Dosage: 50 MG, PRN
     Route: 048
     Dates: start: 20180604
  8. FLUCONAZOL [Concomitant]
     Active Substance: FLUCONAZOLE
     Indication: OESOPHAGITIS
     Dosage: 200 MG, QD
     Route: 048
     Dates: start: 20180611
  9. HYCAMTIN [Suspect]
     Active Substance: TOPOTECAN HYDROCHLORIDE
     Indication: SMALL CELL LUNG CANCER
     Dosage: 1.5 MG/M2, QD (DAY 1 TO 5 OF EACH 21 DAY CYCLE)
     Route: 042
     Dates: start: 20180604, end: 20180608
  10. GLYCERYL TRINITRATE [Concomitant]
     Active Substance: NITROGLYCERIN
     Indication: ANGINA PECTORIS
     Dosage: 0.4 MG, PRN
     Route: 060
     Dates: start: 20180511

REACTIONS (8)
  - Febrile neutropenia [Recovered/Resolved]
  - Asthenia [Unknown]
  - Klebsiella infection [Unknown]
  - Decreased appetite [Unknown]
  - C-reactive protein increased [Unknown]
  - Immune system disorder [Unknown]
  - Thrombocytopenia [Recovered/Resolved]
  - Fatigue [Unknown]

NARRATIVE: CASE EVENT DATE: 20180617
